FAERS Safety Report 4732568-X (Version None)
Quarter: 2005Q3

REPORT INFORMATION
  Report Type: 
  Country: None (occurrence: None)
  Receive Date: 20050801
  Receipt Date: 20050720
  Transmission Date: 20060218
  Serious: Yes (Other)
  Sender: FDA-Public Use
  Company Number: 2005064383

PATIENT
  Age: 64 Year
  Sex: Male
  Weight: 90.7194 kg

DRUGS (10)
  1. BEXTRA [Suspect]
     Indication: OSTEOARTHRITIS
     Dosage: 10 MG(10 MG, 1 IN 1 D), ORAL
     Route: 048
  2. BEXTRA [Suspect]
     Indication: PAIN
     Dosage: 10 MG(10 MG, 1 IN 1 D), ORAL
     Route: 048
  3. ZOLOFT [Concomitant]
  4. DIGOXIN [Concomitant]
  5. METOPROLOL TARTRATE [Concomitant]
  6. FUROSEMIDE (FUROSEMIDE) [Concomitant]
  7. ZOCOR [Concomitant]
  8. PLAVIX [Concomitant]
  9. FLOMAX ^BOEHRINGER INGELHEIM^ (TAMSULOSIN HYDROCHLORIDE) [Concomitant]
  10. GLYCERYL TRINITRATE (GLYCERYL TRINITRATE) [Concomitant]

REACTIONS (15)
  - ARTERIAL OCCLUSIVE DISEASE [None]
  - BITE [None]
  - CHEST PAIN [None]
  - CONTUSION [None]
  - DRUG INEFFECTIVE [None]
  - DRY SKIN [None]
  - ERYTHEMA [None]
  - EXFOLIATIVE RASH [None]
  - GASTRIC DISORDER [None]
  - HEADACHE [None]
  - HYPERHIDROSIS [None]
  - NEPHRECTOMY [None]
  - PROCEDURAL COMPLICATION [None]
  - PRURITUS [None]
  - SKIN CANCER [None]
